FAERS Safety Report 7486532-0 (Version None)
Quarter: 2011Q2

REPORT INFORMATION
  Report Type: 
  Country: None (occurrence: None)
  Receive Date: 20110517
  Receipt Date: 20110504
  Transmission Date: 20111010
  Serious: Yes (Other)
  Sender: FDA-Public Use
  Company Number: FR-UCBSA-032235

PATIENT
  Sex: Female
  Weight: 2.3 kg

DRUGS (4)
  1. FOLIC ACID [Concomitant]
     Dosage: 5MG
     Route: 064
     Dates: start: 20100101
  2. TRILEPTAL [Concomitant]
     Indication: PARTIAL SEIZURES
     Dosage: 400 MG IN THE MORNING AND 900 MG AT NIGHT
     Route: 064
     Dates: start: 20090401
  3. TRILEPTAL [Concomitant]
     Route: 064
  4. VIMPAT [Suspect]
     Indication: PARTIAL SEIZURES
     Route: 064

REACTIONS (2)
  - DRUG EXPOSURE DURING PREGNANCY [None]
  - SMALL FOR DATES BABY [None]
